FAERS Safety Report 21335950 (Version 3)
Quarter: 2023Q1

REPORT INFORMATION
  Report Type: Spontaneous
  Country: US (occurrence: US)
  Receive Date: 20220915
  Receipt Date: 20230228
  Transmission Date: 20230418
  Serious: Yes (Other)
  Sender: FDA-Public Use
  Company Number: US-BRISTOL-MYERS SQUIBB COMPANY-2022-105051

PATIENT
  Age: 74 Year
  Sex: Female

DRUGS (1)
  1. ORENCIA [Suspect]
     Active Substance: ABATACEPT
     Indication: Product used for unknown indication
     Dosage: 1 SYRINGE ONCE A WEEK
     Route: 058

REACTIONS (4)
  - Injection site bruising [Unknown]
  - Cataract [Unknown]
  - Limb discomfort [Unknown]
  - Musculoskeletal stiffness [Unknown]
